FAERS Safety Report 9017164 (Version 1)
Quarter: 2013Q1

REPORT INFORMATION
  Report Type: Spontaneous
  Country: US (occurrence: US)
  Receive Date: 20130117
  Receipt Date: 20130117
  Transmission Date: 20140127
  Serious: Yes (Hospitalization)
  Sender: FDA-Public Use
  Company Number: US-BAYER-2013-005923

PATIENT
  Age: 19 Year
  Sex: Female
  Weight: 54.88 kg

DRUGS (4)
  1. YAZ [Suspect]
  2. ELAVIL [Concomitant]
     Dosage: 10 MG, 3 QHS
     Route: 048
  3. IBUPROFEN [Concomitant]
     Dosage: 800 MG, PRN EVERY 8 HOURS
     Route: 048
  4. AMITRIPTYLINE [Concomitant]
     Dosage: 10 MG, UNK

REACTIONS (1)
  - Deep vein thrombosis [None]
